FAERS Safety Report 6916711-X (Version None)
Quarter: 2010Q3

REPORT INFORMATION
  Report Type: 
  Country: None (occurrence: None)
  Receive Date: 20100810
  Receipt Date: 20100804
  Transmission Date: 20110219
  Serious: Yes (Death)
  Sender: FDA-Public Use
  Company Number: CN-ROCHE-718798

PATIENT
  Sex: Female

DRUGS (2)
  1. MYCOPHENOLATE MOFETIL [Suspect]
     Indication: SYSTEMIC LUPUS ERYTHEMATOSUS
     Dosage: 500 MG IN THE MORNING, 250 MG IN THE EVENING.
     Route: 048
     Dates: start: 20070901
  2. PREDNISONE [Concomitant]
     Indication: SYSTEMIC LUPUS ERYTHEMATOSUS
     Dosage: TRADE NAME WAS REPORTED AS HORMONE.
     Dates: start: 20070901

REACTIONS (1)
  - GENERAL PHYSICAL HEALTH DETERIORATION [None]
